FAERS Safety Report 8400823-8 (Version None)
Quarter: 2012Q2

REPORT INFORMATION
  Report Type: 
  Country: None (occurrence: None)
  Receive Date: 20120531
  Receipt Date: 20110914
  Transmission Date: 20120825
  Serious: Yes (Hospitalization, Disabling)
  Sender: FDA-Public Use
  Company Number: RS-ROCHE-1073346

PATIENT
  Sex: Female
  Weight: 73 kg

DRUGS (6)
  1. CEFTRIAXON [Concomitant]
     Indication: RENAL TRANSPLANT
     Route: 042
     Dates: start: 20081218
  2. TACROLIMUS [Suspect]
     Indication: RENAL TRANSPLANT
     Route: 048
     Dates: start: 20081222
  3. AMLODIPINE BESYLATE [Concomitant]
     Indication: HYPERTENSION
     Route: 048
  4. PREDNISOLONE [Suspect]
     Indication: RENAL TRANSPLANT
     Route: 042
     Dates: start: 20081218
  5. RANISAN [Concomitant]
     Indication: RENAL TRANSPLANT
     Route: 042
     Dates: start: 20081218
  6. CELLCEPT [Suspect]
     Indication: RENAL TRANSPLANT
     Route: 048
     Dates: start: 20081218

REACTIONS (4)
  - GLOMERULONEPHRITIS MEMBRANOUS [None]
  - COMPLICATIONS OF TRANSPLANTED KIDNEY [None]
  - URINARY TRACT OPERATION [None]
  - URETERAL NECROSIS [None]
